FAERS Safety Report 9581365 (Version 1)
Quarter: 2013Q4

REPORT INFORMATION
  Report Type: Spontaneous
  Country: IE (occurrence: IE)
  Receive Date: 20131002
  Receipt Date: 20131002
  Transmission Date: 20140711
  Serious: Yes (Other)
  Sender: FDA-Public Use
  Company Number: IE-GLAXOSMITHKLINE-B0918930A

PATIENT
  Sex: Female

DRUGS (2)
  1. SERETIDE DISKUS [Suspect]
     Indication: ASTHMA
     Dosage: 500MCG TWICE PER DAY
     Route: 065
     Dates: start: 20130614, end: 20130810
  2. SINGULAIR [Concomitant]
     Route: 065

REACTIONS (3)
  - Skin striae [Recovering/Resolving]
  - Skin discolouration [Recovering/Resolving]
  - Blood cortisol decreased [Unknown]
